FAERS Safety Report 21246237 (Version 2)
Quarter: 2022Q3

REPORT INFORMATION
  Report Type: Spontaneous
  Country: US (occurrence: US)
  Receive Date: 20220824
  Receipt Date: 20220901
  Transmission Date: 20221027
  Serious: No
  Sender: FDA-Public Use
  Company Number: US-AMGEN-USASP2022144414

PATIENT
  Sex: Male

DRUGS (6)
  1. OTEZLA [Suspect]
     Active Substance: APREMILAST
     Indication: Psoriasis
     Dosage: 30 MILLIGRAM, BID
     Route: 048
     Dates: start: 20190318
  2. BETAMETH DIPROPIONATE [Concomitant]
     Indication: Product used for unknown indication
     Dosage: 0.05 PERCENT
     Route: 065
  3. EUCRISA [Concomitant]
     Active Substance: CRISABOROLE
     Indication: Product used for unknown indication
     Dosage: 2 PERCENT
     Route: 065
  4. LEVOTHYROXINE [Concomitant]
     Active Substance: LEVOTHYROXINE
     Indication: Product used for unknown indication
     Dosage: 88 MICROGRAM
     Route: 065
  5. SELENIUM SULFIDE [Concomitant]
     Active Substance: SELENIUM SULFIDE
     Indication: Product used for unknown indication
     Dosage: 2.25 PERCENT
     Route: 065
  6. SKYRIZI [Concomitant]
     Active Substance: RISANKIZUMAB-RZAA
     Indication: Product used for unknown indication
     Dosage: 150 MILLIGRAM PER MILLILITRE
     Route: 065

REACTIONS (1)
  - Psoriasis [Unknown]
